FAERS Safety Report 25817939 (Version 1)
Quarter: 2025Q3

REPORT INFORMATION
  Report Type: Spontaneous
  Country: US (occurrence: None)
  Receive Date: 20250918
  Receipt Date: 20250918
  Transmission Date: 20251021
  Serious: Yes (Disabling)
  Sender: FDA-CTU
  Company Number: None

PATIENT
  Age: 19 Year
  Sex: Female
  Weight: 45 kg

DRUGS (2)
  1. SERTRALINE HYDROCHLORIDE [Suspect]
     Active Substance: SERTRALINE HYDROCHLORIDE
     Indication: Anxiety
     Dates: start: 20221012, end: 20240418
  2. SERTRALINE HYDROCHLORIDE [Suspect]
     Active Substance: SERTRALINE HYDROCHLORIDE
     Indication: Depression

REACTIONS (24)
  - Loss of libido [None]
  - Vulvovaginal dryness [None]
  - Anorgasmia [None]
  - Hypoaesthesia [None]
  - Paraesthesia [None]
  - Emotional poverty [None]
  - Amnesia [None]
  - Brain fog [None]
  - Disturbance in attention [None]
  - Cognitive disorder [None]
  - Dry eye [None]
  - Dry mouth [None]
  - Menstruation irregular [None]
  - Hypomenorrhoea [None]
  - Urinary hesitation [None]
  - Decreased appetite [None]
  - Sensory disturbance [None]
  - Insomnia [None]
  - Asthenia [None]
  - Musculoskeletal stiffness [None]
  - Musculoskeletal stiffness [None]
  - Arthralgia [None]
  - Back pain [None]
  - Suicidal ideation [None]

NARRATIVE: CASE EVENT DATE: 20240518
